FAERS Safety Report 25341264 (Version 1)
Quarter: 2025Q2

REPORT INFORMATION
  Report Type: Spontaneous
  Country: DE (occurrence: DE)
  Receive Date: 20250521
  Receipt Date: 20250521
  Transmission Date: 20250716
  Serious: Yes (Death, Other)
  Sender: MERCK SHARP & DOHME LLC
  Company Number: DE-009507513-2285801

PATIENT
  Sex: Female

DRUGS (4)
  1. KEYTRUDA [Suspect]
     Active Substance: PEMBROLIZUMAB
     Indication: Product used for unknown indication
     Dates: start: 202407, end: 202502
  2. LEUCOVORIN [Suspect]
     Active Substance: LEUCOVORIN\LEUCOVORIN CALCIUM
     Indication: Product used for unknown indication
     Dates: start: 202407
  3. FLUOROURACIL [Suspect]
     Active Substance: FLUOROURACIL
     Indication: Product used for unknown indication
     Dates: start: 202407
  4. OXALIPLATIN [Suspect]
     Active Substance: OXALIPLATIN
     Indication: Product used for unknown indication
     Dates: start: 202407

REACTIONS (6)
  - Death [Fatal]
  - Immune-mediated hepatitis [Unknown]
  - Neutropenia [Unknown]
  - Malignant neoplasm progression [Unknown]
  - Cholestasis [Unknown]
  - Bile duct stenosis [Unknown]

NARRATIVE: CASE EVENT DATE: 20240101
